FAERS Safety Report 13844489 (Version 1)
Quarter: 2017Q3

REPORT INFORMATION
  Report Type: Other
  Country: CN (occurrence: CN)
  Receive Date: 20170808
  Receipt Date: 20170808
  Transmission Date: 20171127
  Serious: Yes (Hospitalization, Other)
  Sender: FDA-Public Use
  Company Number: CN-GEHC-2017CSU002359

PATIENT

DRUGS (3)
  1. NIMOTOP [Concomitant]
     Active Substance: NIMODIPINE
     Indication: PULMONARY MASS
     Dosage: 20 MG, UNK
     Route: 048
     Dates: start: 20170307, end: 20170324
  2. CITICOLINE SODIUM [Concomitant]
     Active Substance: CITICOLINE SODIUM
     Indication: PULMONARY MASS
     Dosage: 1 TABLET
     Route: 048
     Dates: start: 20170307, end: 20170324
  3. OMNIPAQUE [Suspect]
     Active Substance: IOHEXOL
     Indication: CHEST PAIN
     Dosage: 100 ML, SINGLE
     Route: 041
     Dates: start: 20170322, end: 20170322

REACTIONS (5)
  - Dermatitis [Recovering/Resolving]
  - Diarrhoea [Recovering/Resolving]
  - Asthenia [Recovering/Resolving]
  - Abdominal pain [Recovering/Resolving]
  - Discomfort [Recovering/Resolving]

NARRATIVE: CASE EVENT DATE: 20170322
